FAERS Safety Report 9071837 (Version 1)
Quarter: 2013Q1

REPORT INFORMATION
  Report Type: Report from Study
  Country: US (occurrence: US)
  Receive Date: 20130129
  Receipt Date: 20130129
  Transmission Date: 20140127
  Serious: No
  Sender: FDA-Public Use
  Company Number: US-ABBOTT-12P-163-0932356-00

PATIENT
  Age: 31 Year
  Sex: Female

DRUGS (9)
  1. HUMIRA 40 MG/0.8 ML PEN [Suspect]
     Indication: CROHN^S DISEASE
     Dates: start: 20120403, end: 20120403
  2. HUMIRA 40 MG/0.8 ML PEN [Suspect]
     Dates: start: 20120417, end: 20120417
  3. HUMIRA 40 MG/0.8 ML PEN [Suspect]
     Dates: start: 20120501
  4. ZOLOFT [Concomitant]
     Indication: DEPRESSION
     Dosage: 50MG DAILY
  5. CYTOMEL [Concomitant]
     Indication: THYROID DISORDER
     Dosage: 25MCG DAILY
  6. ACTONEL [Concomitant]
     Indication: BONE DISORDER
  7. VITAMIN B-6 [Concomitant]
     Indication: PRODUCT USED FOR UNKNOWN INDICATION
  8. CALCIUM [Concomitant]
     Indication: PRODUCT USED FOR UNKNOWN INDICATION
  9. LORATADINE [Concomitant]
     Indication: SEASONAL ALLERGY

REACTIONS (8)
  - Fatigue [Not Recovered/Not Resolved]
  - Headache [Recovered/Resolved]
  - Headache [Recovered/Resolved]
  - Headache [Recovering/Resolving]
  - Nausea [Unknown]
  - Fatigue [Unknown]
  - Pain [Unknown]
  - Infection [Unknown]
